FAERS Safety Report 23972033 (Version 2)
Quarter: 2025Q1

REPORT INFORMATION
  Report Type: Spontaneous
  Country: CN (occurrence: CN)
  Receive Date: 20240613
  Receipt Date: 20250203
  Transmission Date: 20250409
  Serious: Yes (Life-Threatening, Other)
  Sender: PHARMACOSMOS A/S
  Company Number: CN-SIMCERE ZAIMING PHARMACEUTICAL CO., LTD.-2024XSYY2366

PATIENT
  Age: 67 Year
  Sex: Male

DRUGS (7)
  1. TRILACICLIB [Suspect]
     Active Substance: TRILACICLIB
     Indication: Oesophageal squamous cell carcinoma
  2. PACLITAXEL [Suspect]
     Active Substance: PACLITAXEL
     Indication: Oesophageal squamous cell carcinoma
     Dates: start: 20240413, end: 20240413
  3. PACLITAXEL [Suspect]
     Active Substance: PACLITAXEL
     Indication: Oesophageal squamous cell carcinoma
     Dates: start: 20240520, end: 20240520
  4. NEDAPLATIN [Suspect]
     Active Substance: NEDAPLATIN
     Indication: Oesophageal squamous cell carcinoma
     Dates: start: 20240413, end: 20240413
  5. NEDAPLATIN [Suspect]
     Active Substance: NEDAPLATIN
     Indication: Oesophageal squamous cell carcinoma
     Dates: start: 20240520, end: 20240520
  6. CAMRELIZUMAB [Suspect]
     Active Substance: CAMRELIZUMAB
     Indication: Oesophageal squamous cell carcinoma
     Dates: start: 20240413, end: 20240413
  7. CAMRELIZUMAB [Suspect]
     Active Substance: CAMRELIZUMAB
     Indication: Oesophageal squamous cell carcinoma
     Dates: start: 20240520, end: 20240520

REACTIONS (3)
  - Loss of consciousness [Unknown]
  - Tachypnoea [Recovering/Resolving]
  - Coma [Unknown]

NARRATIVE: CASE EVENT DATE: 20240525
